FAERS Safety Report 7511366-8 (Version None)
Quarter: 2011Q2

REPORT INFORMATION
  Report Type: 
  Country: None (occurrence: None)
  Receive Date: 20110531
  Receipt Date: 20100706
  Transmission Date: 20111010
  Serious: Yes (Hospitalization)
  Sender: FDA-Public Use
  Company Number: US-BAYER-201025793NA

PATIENT
  Age: 45 Year
  Sex: Female
  Weight: 82 kg

DRUGS (7)
  1. XANAX [Concomitant]
     Dosage: DAILY
  2. ALPRAZOLAM [Concomitant]
  3. ACETAMINOPHEN [Concomitant]
     Dosage: UNK
  4. OXYCET [Concomitant]
  5. HYDROCHLOROTHIAZIDE [Concomitant]
  6. YASMIN [Suspect]
     Indication: ORAL CONTRACEPTION
     Route: 048
     Dates: start: 20060605, end: 20070415
  7. PERCOCET [Concomitant]

REACTIONS (6)
  - PULMONARY EMBOLISM [None]
  - DYSPNOEA [None]
  - HYPERHIDROSIS [None]
  - PAIN IN EXTREMITY [None]
  - HEART RATE INCREASED [None]
  - RESPIRATORY RATE INCREASED [None]
